FAERS Safety Report 5556053-0 (Version None)
Quarter: 2007Q4

REPORT INFORMATION
  Report Type: 
  Country: None (occurrence: None)
  Receive Date: 20071211
  Receipt Date: 20071127
  Transmission Date: 20080405
  Serious: Yes (Death, Hospitalization)
  Sender: FDA-Public Use
  Company Number: 2007BI025183

PATIENT
  Age: 59 Year
  Sex: Female

DRUGS (2)
  1. NATALIZUMAB [Suspect]
     Indication: MULTIPLE SCLEROSIS
     Dosage: IV
     Route: 042
     Dates: start: 20070518, end: 20071029
  2. COUMADIN [Concomitant]

REACTIONS (5)
  - BRAIN DEATH [None]
  - CEREBRAL HAEMORRHAGE [None]
  - EMBOLIC STROKE [None]
  - ISCHAEMIC STROKE [None]
  - THROMBOSIS [None]
